FAERS Safety Report 7208118-5 (Version None)
Quarter: 2010Q4

REPORT INFORMATION
  Report Type: 
  Country: None (occurrence: None)
  Receive Date: 20101230
  Receipt Date: 20101230
  Transmission Date: 20110411
  Serious: Yes (Life-Threatening, Other)
  Sender: FDA-Public Use
  Company Number: None

PATIENT
  Age: 68 Year
  Sex: Female
  Weight: 65.318 kg

DRUGS (1)
  1. CELEBREX [Suspect]
     Indication: BONE PAIN
     Dosage: 1 DAILY PO
     Route: 048
     Dates: start: 20100823, end: 20101005

REACTIONS (6)
  - CHEST PAIN [None]
  - DYSPEPSIA [None]
  - GASTRIC DISORDER [None]
  - GASTRIC PH DECREASED [None]
  - GASTROINTESTINAL DISORDER [None]
  - OESOPHAGEAL SPASM [None]
